FAERS Safety Report 8354442-2 (Version None)
Quarter: 2012Q2

REPORT INFORMATION
  Report Type: 
  Country: None (occurrence: None)
  Receive Date: 20120511
  Receipt Date: 20100903
  Transmission Date: 20120825
  Serious: Yes (Other)
  Sender: FDA-Public Use
  Company Number: CN-ROCHE-725034

PATIENT
  Age: 60 Year
  Sex: Female
  Weight: 55 kg

DRUGS (4)
  1. IBANDRONATE SODIUM [Suspect]
     Indication: METASTASES TO BONE
     Dosage: THE TRADE NAME WAS REPORTED AS AIBEN
     Route: 041
  2. PACLITAXEL [Suspect]
     Indication: BREAST CANCER
     Route: 041
     Dates: start: 20100826, end: 20101001
  3. HERCEPTIN [Suspect]
     Indication: BREAST CANCER
     Dosage: 440 MG ONCE THREE WEEKS AS LOADING DOSE.
     Route: 041
  4. LETROZOLE [Concomitant]
     Indication: BREAST CANCER
     Route: 048

REACTIONS (17)
  - DEPRESSED MOOD [None]
  - HEART VALVE INCOMPETENCE [None]
  - FATIGUE [None]
  - RASH [None]
  - BONE PAIN [None]
  - HAEMORRHAGIC CYST [None]
  - DISEASE PROGRESSION [None]
  - HEPATIC FUNCTION ABNORMAL [None]
  - RENAL CYST [None]
  - CHOLECYSTITIS [None]
  - NASOPHARYNGITIS [None]
  - PAIN [None]
  - DIARRHOEA [None]
  - WHITE BLOOD CELL COUNT DECREASED [None]
  - NEUTROPHIL COUNT DECREASED [None]
  - BREAST CANCER METASTATIC [None]
  - DRUG INEFFECTIVE [None]
